FAERS Safety Report 23772115 (Version 9)
Quarter: 2025Q1

REPORT INFORMATION
  Report Type: Report from Study
  Country: IN (occurrence: IN)
  Receive Date: 20240423
  Receipt Date: 20250326
  Transmission Date: 20250408
  Serious: Yes (Hospitalization, Other)
  Sender: NOVARTIS
  Company Number: IN-002147023-NVSC2024IN084059

PATIENT
  Age: 68 Year
  Sex: Female

DRUGS (6)
  1. RIBOCICLIB [Suspect]
     Active Substance: RIBOCICLIB
     Indication: Breast cancer metastatic
     Dosage: 600 MG, TID (1-1-1 AFTER FOOD - DAILY - 21 DAYS QTY 63)
     Route: 048
     Dates: start: 20221215
  2. RIBOCICLIB [Suspect]
     Active Substance: RIBOCICLIB
     Indication: Breast cancer
     Dosage: 600 MG, QD
     Route: 048
  3. RIBOCICLIB [Suspect]
     Active Substance: RIBOCICLIB
     Indication: Hormone receptor positive HER2 negative breast cancer
     Dosage: 200 MG, TID (1-1-1) AFTER FOOD DALLY - 21 DAY(S) 21DAYS ON AND 7DAYS
     Route: 048
  4. RIBOCICLIB [Suspect]
     Active Substance: RIBOCICLIB
     Dosage: 200 MG, BID ( 1-0-1, 21 DAYS ON AND 7 DAYS OFF)
     Route: 048
  5. FULVESTRANT [Concomitant]
     Active Substance: FULVESTRANT
     Indication: Product used for unknown indication
     Route: 065
  6. Za [Concomitant]
     Indication: Product used for unknown indication
     Route: 065

REACTIONS (12)
  - Scoliosis [Unknown]
  - Diverticulum intestinal [Unknown]
  - Cardiomegaly [Unknown]
  - Pneumothorax [Recovering/Resolving]
  - Pulmonary fibrosis [Recovering/Resolving]
  - Cholecystitis [Unknown]
  - Pulmonary mass [Recovering/Resolving]
  - Pulmonary septal thickening [Recovering/Resolving]
  - Pulmonary calcification [Recovering/Resolving]
  - Pleural effusion [Unknown]
  - Cholelithiasis [Unknown]
  - Off label use [Unknown]

NARRATIVE: CASE EVENT DATE: 20221220
